FAERS Safety Report 5361466-6 (Version None)
Quarter: 2007Q2

REPORT INFORMATION
  Report Type: 
  Country: None (occurrence: None)
  Receive Date: 20070619
  Receipt Date: 20070611
  Transmission Date: 20071010
  Serious: Yes (Hospitalization)
  Sender: FDA-Public Use
  Company Number: US-SP-2007-01781

PATIENT
  Age: 81 Year
  Sex: Male

DRUGS (8)
  1. THERACYS [Suspect]
     Indication: BLADDER CANCER
     Route: 043
     Dates: start: 20070228
  2. THERACYS [Suspect]
     Route: 043
     Dates: start: 20070228
  3. ASPIRIN [Concomitant]
  4. IRON [Concomitant]
  5. LIPITOR [Concomitant]
  6. POTASSIUM ACETATE [Concomitant]
  7. TERAZOSIN HCL [Concomitant]
  8. ZETIA [Concomitant]

REACTIONS (8)
  - ANOREXIA [None]
  - BOVINE TUBERCULOSIS [None]
  - CHILLS [None]
  - LUNG NEOPLASM [None]
  - METASTATIC NEOPLASM [None]
  - PLEURAL EFFUSION [None]
  - PYREXIA [None]
  - WEIGHT DECREASED [None]
